FAERS Safety Report 6653448-9 (Version None)
Quarter: 2010Q1

REPORT INFORMATION
  Report Type: 
  Country: None (occurrence: None)
  Receive Date: 20100326
  Receipt Date: 20100322
  Transmission Date: 20100710
  Serious: Yes (Death)
  Sender: FDA-Public Use
  Company Number: PHHY2010FR17527

PATIENT
  Age: 50 Year
  Sex: Male

DRUGS (2)
  1. NEORAL [Suspect]
     Indication: PSORIASIS
  2. ENBREL [Suspect]
     Indication: PSORIASIS
     Dosage: 50 MG 1 IN 1 WEEK
     Route: 058

REACTIONS (1)
  - LUNG NEOPLASM MALIGNANT [None]
